FAERS Safety Report 9736411 (Version 1)
Quarter: 2013Q4

REPORT INFORMATION
  Report Type: Spontaneous
  Country: US (occurrence: US)
  Receive Date: 20131206
  Receipt Date: 20131206
  Transmission Date: 20140711
  Serious: Yes (Hospitalization, Other)
  Sender: FDA-Public Use
  Company Number: PHHY2013US139528

PATIENT
  Age: 87 Year
  Sex: Female

DRUGS (4)
  1. DESMOPRESSIN [Suspect]
     Indication: ENURESIS
     Dosage: 0.4 MG, DAILY
     Route: 048
  2. DESMOPRESSIN [Interacting]
     Dosage: 0.2 MG, Q12H
     Route: 048
  3. ACETYLSALICYLIC ACID [Interacting]
  4. IBUPROFEN [Interacting]

REACTIONS (5)
  - Hyponatraemia [Recovered/Resolved]
  - Muscular weakness [Recovered/Resolved]
  - Gait disturbance [Recovered/Resolved]
  - Resting tremor [Unknown]
  - Drug interaction [Unknown]
